FAERS Safety Report 22102465 (Version 2)
Quarter: 2023Q1

REPORT INFORMATION
  Report Type: Spontaneous
  Country: US (occurrence: US)
  Receive Date: 20230316
  Receipt Date: 20230321
  Transmission Date: 20230417
  Serious: Yes (Death, Life-Threatening, Hospitalization, Other)
  Sender: FDA-Public Use
  Company Number: US-PFIZER INC-PV202300047178

PATIENT
  Age: 52 Year
  Sex: Male

DRUGS (1)
  1. AMIODARONE HYDROCHLORIDE [Suspect]
     Active Substance: AMIODARONE HYDROCHLORIDE
     Indication: Atrial fibrillation
     Dosage: FOR GREATER THAN 1 YEAR

REACTIONS (9)
  - Cardiogenic shock [Fatal]
  - Thyrotoxic crisis [Fatal]
  - Drug ineffective [Fatal]
  - Cardio-respiratory arrest [Fatal]
  - Liver function test increased [Fatal]
  - Hyperthyroidism [Fatal]
  - Cardiomyopathy [Fatal]
  - Haemodynamic instability [Fatal]
  - Ventricular tachycardia [Fatal]
